FAERS Safety Report 10055505 (Version 1)
Quarter: 2014Q2

REPORT INFORMATION
  Report Type: Spontaneous
  Country: US (occurrence: US)
  Receive Date: 20140403
  Receipt Date: 20140403
  Transmission Date: 20141212
  Serious: No
  Sender: FDA-Public Use
  Company Number: US-009507513-1404USA000610

PATIENT
  Sex: Female

DRUGS (3)
  1. PROVENTIL [Suspect]
     Indication: ASTHMA
     Dosage: 1 PUFF 4 TIMES DAILY
     Route: 055
  2. PROVENTIL [Suspect]
     Dosage: 1 DF, 5 TIMES PER DAY
     Route: 055
  3. SYMBICORT [Concomitant]

REACTIONS (4)
  - Asthma [Unknown]
  - Drug dose omission [Unknown]
  - Product quality issue [Unknown]
  - Extra dose administered [Unknown]
